FAERS Safety Report 4779046-X (Version None)
Quarter: 2005Q3

REPORT INFORMATION
  Report Type: 
  Country: None (occurrence: None)
  Receive Date: 20050923
  Receipt Date: 20050913
  Transmission Date: 20060218
  Serious: Yes (Other)
  Sender: FDA-Public Use
  Company Number: 2005129493

PATIENT
  Age: 61 Year
  Sex: Female

DRUGS (5)
  1. LYRICA [Suspect]
     Indication: MYALGIA
     Dosage: 150 MG (UNKNOWN); ORAL
     Route: 048
     Dates: start: 20050708, end: 20050906
  2. BISOPROLOL FUMARATE [Concomitant]
  3. EZETIMIBE [Concomitant]
  4. SIMVASTATIN [Concomitant]
  5. CO-AMILOFRUSE (AMILORIDE HYDROCHLORIDE, FUROSEMIDE) [Concomitant]

REACTIONS (1)
  - MIGRAINE [None]
